FAERS Safety Report 10819407 (Version 1)
Quarter: 2015Q1

REPORT INFORMATION
  Report Type: Report from Study
  Country: US (occurrence: US)
  Receive Date: 20150218
  Receipt Date: 20150218
  Transmission Date: 20150721
  Serious: No
  Sender: FDA-Public Use
  Company Number: US-ABBVIE-14K-163-1292441-00

PATIENT
  Age: 49 Year
  Sex: Female

DRUGS (7)
  1. MULTI VITAMIN [Concomitant]
     Active Substance: VITAMINS
     Indication: PRODUCT USED FOR UNKNOWN INDICATION
  2. OMEPRAZOLE. [Concomitant]
     Active Substance: OMEPRAZOLE
     Indication: GASTROOESOPHAGEAL REFLUX DISEASE
  3. HUMIRA [Suspect]
     Active Substance: ADALIMUMAB
     Indication: CROHN^S DISEASE
     Route: 065
     Dates: start: 20140822
  4. WELLBUTRIN [Concomitant]
     Active Substance: BUPROPION HYDROCHLORIDE
     Indication: DEPRESSION
  5. ACYCLOVIR. [Concomitant]
     Active Substance: ACYCLOVIR
     Indication: NEURALGIA
  6. ACYCLOVIR. [Concomitant]
     Active Substance: ACYCLOVIR
     Indication: HERPES ZOSTER
  7. PROBIOTICS [Concomitant]
     Active Substance: PROBIOTICS NOS
     Indication: PRODUCT USED FOR UNKNOWN INDICATION

REACTIONS (8)
  - Tinea cruris [Recovered/Resolved]
  - Rash pruritic [Recovered/Resolved]
  - Fungal infection [Recovered/Resolved]
  - Groin pain [Not Recovered/Not Resolved]
  - Rash erythematous [Recovered/Resolved]
  - Acrochordon [Unknown]
  - Pruritus [Recovering/Resolving]
  - Excoriation [Not Recovered/Not Resolved]

NARRATIVE: CASE EVENT DATE: 2014
